FAERS Safety Report 7198621-9 (Version None)
Quarter: 2010Q4

REPORT INFORMATION
  Report Type: 
  Country: None (occurrence: None)
  Receive Date: 20101227
  Receipt Date: 20100824
  Transmission Date: 20110411
  Serious: No
  Sender: FDA-Public Use
  Company Number: US-ABBOTT-10P-163-0666134-00

PATIENT
  Sex: Male
  Weight: 59.02 kg

DRUGS (2)
  1. LUPRON DEPOT [Suspect]
     Indication: PROSTATE CANCER METASTATIC
     Dates: start: 20100212
  2. COREG [Concomitant]
     Indication: HEART RATE IRREGULAR

REACTIONS (2)
  - INJECTION SITE NODULE [None]
  - INJECTION SITE PAIN [None]
